FAERS Safety Report 9239497 (Version 1)
Quarter: 2013Q2

REPORT INFORMATION
  Report Type: Spontaneous
  Country: US (occurrence: US)
  Receive Date: 20130418
  Receipt Date: 20130418
  Transmission Date: 20140414
  Serious: Yes (Hospitalization)
  Sender: FDA-Public Use
  Company Number: US-ASTRAZENECA-2013SE24829

PATIENT
  Age: 70 Year
  Sex: Male
  Weight: 98.9 kg

DRUGS (2)
  1. SYMBICORT [Suspect]
     Indication: CHRONIC OBSTRUCTIVE PULMONARY DISEASE
     Dosage: 80/4.5 MCG, DAILY DOSE 2 PUFFS, BID
     Route: 055
     Dates: start: 2012
  2. UNKNOWN [Concomitant]

REACTIONS (6)
  - Lower limb fracture [Recovered/Resolved]
  - Pneumonia [Unknown]
  - Fall [Recovered/Resolved]
  - Retching [Recovered/Resolved]
  - Drug administration error [Recovered/Resolved]
  - Drug dose omission [Recovered/Resolved]
